FAERS Safety Report 9368926 (Version 1)
Quarter: 2013Q2

REPORT INFORMATION
  Report Type: Spontaneous
  Country: US (occurrence: None)
  Receive Date: 20130624
  Receipt Date: 20130624
  Transmission Date: 20140414
  Serious: Yes (Death)
  Sender: FDA-Public Use
  Company Number: B0901176A

PATIENT
  Sex: Male

DRUGS (4)
  1. WELLBURTIN (FORMULATION UNKNOWN) (BUPROPION HYDROCHLORIDE) [Suspect]
     Indication: PRODUCT USED FOR UNKNOWN INDICATION
  2. CLONIDINE (FORMULATION UNKNOWN) (CLONIDINE) [Suspect]
     Indication: PRODUCT USED FOR UNKNOWN INDICATION
  3. METHYPHENIDATE HCL [Suspect]
     Indication: PRODUCT USED FOR UNKNOWN INDICATION
  4. MELATONIN (FORMULATION UNKNOWN) (MELATONIN) [Suspect]
     Indication: PRODUCT USED FOR UNKNOWN INDICATION

REACTIONS (1)
  - Toxicity to various agents [None]
